FAERS Safety Report 7346516-X (Version None)
Quarter: 2011Q1

REPORT INFORMATION
  Report Type: 
  Country: None (occurrence: None)
  Receive Date: 20110311
  Receipt Date: 20110301
  Transmission Date: 20110831
  Serious: Yes (Other)
  Sender: FDA-Public Use
  Company Number: US-BRACCO-005960

PATIENT
  Sex: Male
  Weight: 77 kg

DRUGS (13)
  1. AMLODIPINE [Concomitant]
  2. CHOLECALCIFEROL [Concomitant]
  3. NEORAL [Concomitant]
  4. LEVOTHYROXINE [Concomitant]
  5. LOVAZA [Concomitant]
  6. SIMVASTATIN [Suspect]
     Indication: BLOOD CHOLESTEROL INCREASED
     Dosage: QHS
     Dates: end: 20101220
  7. ISOVUE-128 [Suspect]
     Indication: HEART TRANSPLANT
     Dates: start: 20101129, end: 20101129
  8. NPH INSULIN [Concomitant]
     Dosage: 15 UNITS QHS
  9. ASPIRIN [Concomitant]
  10. ALL OTHER THERAPEUTIC PRODUCTS [Concomitant]
  11. ISOVUE-128 [Suspect]
     Indication: ARTERIOGRAM CORONARY
     Dates: start: 20101129, end: 20101129
  12. SIROLIMUS [Concomitant]
  13. MULTI-VITAMIN [Concomitant]

REACTIONS (1)
  - RHABDOMYOLYSIS [None]
